FAERS Safety Report 6775038-X (Version None)
Quarter: 2010Q2

REPORT INFORMATION
  Report Type: 
  Country: None (occurrence: None)
  Receive Date: 20100617
  Receipt Date: 20100614
  Transmission Date: 20101027
  Serious: Yes (Hospitalization)
  Sender: FDA-Public Use
  Company Number: A0865433A

PATIENT
  Age: 63 Year
  Sex: Male

DRUGS (1)
  1. AVANDIA [Suspect]
     Dates: start: 20010601, end: 20070601

REACTIONS (5)
  - CARDIAC FAILURE CONGESTIVE [None]
  - CEREBROVASCULAR ACCIDENT [None]
  - CHRONIC OBSTRUCTIVE PULMONARY DISEASE [None]
  - CORONARY ARTERY DISEASE [None]
  - MYOCARDIAL INFARCTION [None]
